FAERS Safety Report 21341707 (Version 1)
Quarter: 2022Q3

REPORT INFORMATION
  Report Type: Spontaneous
  Country: CN (occurrence: CN)
  Receive Date: 20220916
  Receipt Date: 20220916
  Transmission Date: 20221027
  Serious: Yes (Other)
  Sender: FDA-Public Use
  Company Number: None

PATIENT
  Age: 5 Year
  Sex: Female
  Weight: 13 kg

DRUGS (7)
  1. CYCLOPHOSPHAMIDE [Suspect]
     Active Substance: CYCLOPHOSPHAMIDE
     Indication: Acute lymphocytic leukaemia
     Dosage: 600 MG, QD, DILUTED WITH 0.9% SODIUM CHLORIDE
     Route: 041
     Dates: start: 20220808, end: 20220808
  2. SODIUM CHLORIDE [Suspect]
     Active Substance: SODIUM CHLORIDE
     Indication: Medication dilution
     Dosage: 250 ML, QD, DILUTED WITH CYCLOPHOSPHAMIDE
     Route: 041
     Dates: start: 20220808, end: 20220808
  3. SODIUM CHLORIDE [Suspect]
     Active Substance: SODIUM CHLORIDE
     Dosage: 90 ML, QD, DILUTED WITH (METHOTREXATE 10 MG + CYTARABINE HYDROCHLORIDE 35 MG)
     Route: 037
     Dates: start: 20220808, end: 20220808
  4. DEXTROSE MONOHYDRATE [Suspect]
     Active Substance: DEXTROSE MONOHYDRATE
     Indication: Medication dilution
     Dosage: 50 ML, ONCE IN EVERY 2 DAYS, DILUTED IN CYTARABINE HYDROCHLORIDE
     Route: 041
     Dates: start: 20220810, end: 20220812
  5. METHOTREXATE [Suspect]
     Active Substance: METHOTREXATE
     Indication: Acute lymphocytic leukaemia
     Dosage: 10 MG, QD, DILUTED WITH (SODIUM CHLORIDE 90 ML + CYTARABINE HYDROCHLORIDE 35 MG)
     Route: 037
     Dates: start: 20220808, end: 20220808
  6. CYTARABINE HYDROCHLORIDE [Suspect]
     Active Substance: CYTARABINE HYDROCHLORIDE
     Indication: Acute lymphocytic leukaemia
     Dosage: 30 MG, ONCE IN 2 DAYS, DILUTED WITH GLUCOSE
     Route: 041
     Dates: start: 20220810, end: 20220812
  7. CYTARABINE HYDROCHLORIDE [Suspect]
     Active Substance: CYTARABINE HYDROCHLORIDE
     Dosage: 35 MG, QD, DILUTED WITH (SODIUM CHLORIDE 90 ML + METHOTREXATE 10 MG)
     Route: 037
     Dates: start: 20220808, end: 20220808

REACTIONS (1)
  - Myelosuppression [Recovering/Resolving]

NARRATIVE: CASE EVENT DATE: 20220822
